FAERS Safety Report 9380172 (Version 1)
Quarter: 2013Q3

REPORT INFORMATION
  Report Type: Spontaneous
  Country: US (occurrence: None)
  Receive Date: 20130701
  Receipt Date: 20130701
  Transmission Date: 20140515
  Serious: Yes (Other)
  Sender: FDA-Public Use
  Company Number: None

PATIENT
  Age: 56 Year
  Sex: Female

DRUGS (1)
  1. RENVELA [Suspect]
     Indication: HYPERPHOSPHATAEMIA
     Dosage: PO
     Route: 048
     Dates: start: 20130619

REACTIONS (5)
  - Oedema [None]
  - Constipation [None]
  - Muscle spasms [None]
  - Urine analysis abnormal [None]
  - Dialysis [None]
